FAERS Safety Report 12781153 (Version 2)
Quarter: 2016Q4

REPORT INFORMATION
  Report Type: Spontaneous
  Country: IT (occurrence: IT)
  Receive Date: 20160926
  Receipt Date: 20161005
  Transmission Date: 20170207
  Serious: Yes (Other)
  Sender: FDA-Public Use
  Company Number: IT-SA-2016SA174913

PATIENT
  Age: 97 Year
  Sex: Male

DRUGS (5)
  1. DAONIL [Suspect]
     Active Substance: GLYBURIDE
     Indication: DIABETES MELLITUS
     Route: 048
     Dates: start: 20160101, end: 20160912
  2. NEURONTIN [Concomitant]
     Active Substance: GABAPENTIN
  3. ZESTRIL [Concomitant]
     Active Substance: LISINOPRIL
  4. GLUCOPHAGE [Suspect]
     Active Substance: METFORMIN HYDROCHLORIDE
     Indication: DIABETES MELLITUS
     Dosage: 500 MG STRENGTH
     Route: 048
     Dates: start: 20160101, end: 20160912
  5. ASCRIPTIN [Concomitant]
     Active Substance: ASPIRIN
     Dosage: DIVISIBLE TABLETS

REACTIONS (3)
  - Aphasia [Recovering/Resolving]
  - Psychomotor hyperactivity [Recovering/Resolving]
  - Hypoglycaemia [Recovering/Resolving]

NARRATIVE: CASE EVENT DATE: 20160912
